FAERS Safety Report 21397378 (Version 1)
Quarter: 2022Q3

REPORT INFORMATION
  Report Type: Spontaneous
  Country: FR (occurrence: FR)
  Receive Date: 20220930
  Receipt Date: 20220930
  Transmission Date: 20221027
  Serious: Yes (Other)
  Sender: FDA-Public Use
  Company Number: FR-NOVARTISPH-NVSC2022FR218130

PATIENT
  Age: 72 Year
  Sex: Male
  Weight: 83 kg

DRUGS (13)
  1. METFORMIN HYDROCHLORIDE [Suspect]
     Active Substance: METFORMIN HYDROCHLORIDE
     Indication: Type 2 diabetes mellitus
     Dosage: 500 MG
     Route: 065
     Dates: start: 20191220
  2. FLUDEX [Concomitant]
     Indication: Diuretic therapy
     Dosage: 1.5 MG
     Route: 065
     Dates: start: 20191119
  3. RACECADOTRIL [Concomitant]
     Active Substance: RACECADOTRIL
     Indication: Prophylaxis against diarrhoea
     Route: 065
     Dates: start: 20200131
  4. SMECTA [Concomitant]
     Active Substance: MONTMORILLONITE
     Indication: Prophylaxis against diarrhoea
     Route: 065
     Dates: start: 20200129
  5. BACTRIM [Concomitant]
     Active Substance: SULFAMETHOXAZOLE\TRIMETHOPRIM
     Indication: Antibiotic prophylaxis
     Route: 065
     Dates: start: 20141015
  6. NEBIVOLOL [Concomitant]
     Active Substance: NEBIVOLOL
     Indication: Hypertension
     Dosage: 05 MG
     Route: 065
     Dates: start: 20191119
  7. TAMSULOSIN HYDROCHLORIDE [Concomitant]
     Active Substance: TAMSULOSIN HYDROCHLORIDE
     Indication: Benign prostatic hyperplasia
     Dosage: 0.4 MG
     Route: 065
     Dates: start: 20191220
  8. METFORMIN PAMOATE [Concomitant]
     Active Substance: METFORMIN PAMOATE
     Indication: Type 2 diabetes mellitus
     Route: 065
     Dates: start: 20201102
  9. AVODART [Concomitant]
     Active Substance: DUTASTERIDE
     Indication: Benign prostatic hyperplasia
     Route: 065
     Dates: start: 20191220
  10. ALLOPURINOL [Concomitant]
     Active Substance: ALLOPURINOL
     Indication: Prophylaxis
     Route: 065
     Dates: start: 20200103
  11. OMEPRAZOLE [Concomitant]
     Active Substance: OMEPRAZOLE
     Indication: Gastrooesophageal reflux prophylaxis
     Route: 065
     Dates: start: 20200129
  12. IMBRUVICA [Concomitant]
     Active Substance: IBRUTINIB
     Indication: Chronic lymphocytic leukaemia
     Route: 065
     Dates: start: 20141015, end: 20200219
  13. VALACICLOVIR EG [Concomitant]
     Indication: Antiviral prophylaxis
     Route: 065
     Dates: start: 20141015

REACTIONS (6)
  - Urinary tract infection [Recovered/Resolved]
  - Neutropenia [Not Recovered/Not Resolved]
  - Diarrhoea [Not Recovered/Not Resolved]
  - Diarrhoea [Recovered/Resolved]
  - Off label use [Unknown]
  - Off label use [Unknown]

NARRATIVE: CASE EVENT DATE: 20200123
